FAERS Safety Report 8239692-8 (Version None)
Quarter: 2012Q1

REPORT INFORMATION
  Report Type: 
  Country: None (occurrence: None)
  Receive Date: 20120328
  Receipt Date: 20120314
  Transmission Date: 20120608
  Serious: Yes (Hospitalization)
  Sender: FDA-Public Use
  Company Number: CA-RANBAXY-2010US-34482

PATIENT
  Age: 58 Year
  Sex: Female

DRUGS (4)
  1. HYDROCHLOROTHIAZIDE [Suspect]
     Indication: PRODUCT USED FOR UNKNOWN INDICATION
     Dosage: 25 MG, OD
     Route: 065
  2. CITALOPRAM HYDROBROMIDE [Suspect]
     Indication: PRODUCT USED FOR UNKNOWN INDICATION
     Dosage: 60 MG, OD
     Route: 065
  3. QUETIAPINE [Suspect]
     Indication: PRODUCT USED FOR UNKNOWN INDICATION
     Dosage: 200 MG, EVERY HOUR OF SLEEP
     Route: 065
  4. QUETIAPINE [Suspect]
     Dosage: 50 MG TID
     Route: 065

REACTIONS (8)
  - TORSADE DE POINTES [None]
  - ELECTROCARDIOGRAM QT PROLONGED [None]
  - VENTRICULAR FIBRILLATION [None]
  - HYPERHIDROSIS [None]
  - HYPOKALAEMIA [None]
  - ELECTROLYTE IMBALANCE [None]
  - HYPOMAGNESAEMIA [None]
  - NAUSEA [None]
